FAERS Safety Report 10210098 (Version 2)
Quarter: 2015Q1

REPORT INFORMATION
  Report Type: Other
  Country: CO (occurrence: CO)
  Receive Date: 20140602
  Receipt Date: 20150216
  Transmission Date: 20150720
  Serious: Yes (Hospitalization)
  Sender: FDA-Public Use
  Company Number: CO-SHIRE-CO201402550

PATIENT
  Age: 5 Year
  Sex: Male
  Weight: 26 kg

DRUGS (1)
  1. ELAPRASE [Suspect]
     Active Substance: IDURSULFASE
     Indication: MUCOPOLYSACCHARIDOSIS II
     Dosage: 12 MG(2 VIALS), 1X/WEEK
     Route: 041
     Dates: start: 20130411

REACTIONS (2)
  - Oxygen saturation decreased [Recovered/Resolved]
  - Cardiac valve disease [Unknown]

NARRATIVE: CASE EVENT DATE: 2014
